FAERS Safety Report 9046150 (Version 2)
Quarter: 2013Q1

REPORT INFORMATION
  Report Type: Spontaneous
  Country: PH (occurrence: PH)
  Receive Date: 20130201
  Receipt Date: 20130207
  Transmission Date: 20140127
  Serious: Yes (Other)
  Sender: FDA-Public Use
  Company Number: PH-009507513-1301PHL012503

PATIENT
  Age: 53 Year
  Sex: Male

DRUGS (2)
  1. JANUVIA [Suspect]
     Indication: DIABETES MELLITUS
     Dosage: 100 DF, QD
     Dates: start: 201209, end: 201212
  2. LOSARTAN POTASSIUM [Concomitant]

REACTIONS (5)
  - Cerebrovascular accident [Unknown]
  - Nerve block [Unknown]
  - Dizziness [Unknown]
  - Blood pressure increased [Unknown]
  - Blood glucose increased [Unknown]
